FAERS Safety Report 24028350 (Version 2)
Quarter: 2024Q3

REPORT INFORMATION
  Report Type: Spontaneous
  Country: PL (occurrence: PL)
  Receive Date: 20240628
  Receipt Date: 20240903
  Transmission Date: 20241017
  Serious: No
  Sender: Thea Pharma
  Company Number: None

PATIENT
  Age: 70 Year
  Weight: 80 kg

DRUGS (2)
  1. LATANOPROST [Suspect]
     Active Substance: LATANOPROST
     Route: 047
     Dates: start: 20190914
  2. ACARD [Concomitant]

REACTIONS (10)
  - Dyspnoea [Unknown]
  - Tinnitus [Unknown]
  - Photosensitivity reaction [Unknown]
  - Arthralgia [Unknown]
  - Ocular hyperaemia [Unknown]
  - Blood pressure increased [Unknown]
  - Palpitations [Unknown]
  - Myalgia [Unknown]
  - Foreign body sensation in eyes [Unknown]
  - Headache [Unknown]
